FAERS Safety Report 5582099-2 (Version None)
Quarter: 2007Q4

REPORT INFORMATION
  Report Type: 
  Country: None (occurrence: None)
  Receive Date: 20071130
  Receipt Date: 20070807
  Transmission Date: 20080405
  Serious: No
  Sender: FDA-Public Use
  Company Number: US200708003075

PATIENT
  Age: 58 Year
  Sex: Male
  Weight: 83.9 kg

DRUGS (8)
  1. BYETTA [Suspect]
     Indication: TYPE 2 DIABETES MELLITUS
     Dosage: 5 UG, 2/D, 10 UG, 2/D,  SUBCUTANEOUS
     Route: 058
     Dates: start: 20051201, end: 20060101
  2. BYETTA [Suspect]
     Indication: TYPE 2 DIABETES MELLITUS
     Dosage: 5 UG, 2/D, 10 UG, 2/D,  SUBCUTANEOUS
     Route: 058
     Dates: start: 20060101, end: 20060401
  3. BYETTA [Suspect]
     Indication: TYPE 2 DIABETES MELLITUS
     Dosage: 5 UG, 2/D, 10 UG, 2/D,  SUBCUTANEOUS
     Route: 058
     Dates: start: 20060401, end: 20060501
  4. BYETTA [Suspect]
     Indication: TYPE 2 DIABETES MELLITUS
     Dosage: 5 UG, 2/D, 10 UG, 2/D,  SUBCUTANEOUS
     Route: 058
     Dates: start: 20060501, end: 20070101
  5. BYETTA [Suspect]
     Indication: TYPE 2 DIABETES MELLITUS
     Dosage: 5 UG, 2/D, 10 UG, 2/D,  SUBCUTANEOUS
     Route: 058
     Dates: start: 20070101
  6. HYDROCHLOROTHIAZIDE [Concomitant]
  7. LISINOPRIL [Concomitant]
  8. LIPITOR [Concomitant]

REACTIONS (4)
  - CROHN'S DISEASE [None]
  - GASTRIC MUCOSAL LESION [None]
  - PRURITUS GENERALISED [None]
  - WEIGHT DECREASED [None]
